FAERS Safety Report 21854801 (Version 2)
Quarter: 2023Q1

REPORT INFORMATION
  Report Type: Report from Study
  Country: US (occurrence: US)
  Receive Date: 20230112
  Receipt Date: 20230201
  Transmission Date: 20230417
  Serious: Yes (Death, Hospitalization)
  Sender: FDA-Public Use
  Company Number: US-OTSUKA-2023_000704

PATIENT
  Age: 75 Year
  Sex: Female

DRUGS (1)
  1. DEXTROMETHORPHAN HYDROBROMIDE\QUINIDINE SULFATE [Suspect]
     Active Substance: DEXTROMETHORPHAN HYDROBROMIDE\QUINIDINE SULFATE
     Indication: Affect lability
     Dosage: 1 DF (20-10MG) DAILY (QUANTITY OF 30 CAPSULES FOR 30 DAYS)
     Route: 065
     Dates: start: 20220502

REACTIONS (1)
  - Dementia with Lewy bodies [Fatal]

NARRATIVE: CASE EVENT DATE: 20221004
